FAERS Safety Report 7046302-4 (Version None)
Quarter: 2010Q4

REPORT INFORMATION
  Report Type: 
  Country: None (occurrence: None)
  Receive Date: 20101014
  Receipt Date: 20101007
  Transmission Date: 20110411
  Serious: Yes (Hospitalization)
  Sender: FDA-Public Use
  Company Number: B0678293A

PATIENT
  Sex: Female

DRUGS (5)
  1. ZOVIRAX [Suspect]
     Indication: HERPES VIRUS INFECTION
     Dosage: 200MG FIVE TIMES PER DAY
     Route: 048
     Dates: start: 20100905
  2. ZOVIRAX [Suspect]
     Indication: HERPES VIRUS INFECTION
     Route: 047
     Dates: start: 20100905, end: 20100908
  3. CLAMOXYL [Suspect]
     Indication: PHARYNGITIS
     Route: 048
     Dates: start: 20100905, end: 20100908
  4. HEXASPRAY [Suspect]
     Indication: PHARYNGITIS
     Route: 049
     Dates: start: 20100905, end: 20100908
  5. RHINOFLUIMUCIL [Suspect]
     Indication: PHARYNGITIS
     Route: 045
     Dates: start: 20100905, end: 20100908

REACTIONS (7)
  - ACUTE GENERALISED EXANTHEMATOUS PUSTULOSIS [None]
  - EYELID OEDEMA [None]
  - INFLAMMATION [None]
  - PRURITUS [None]
  - RASH [None]
  - RASH PAPULAR [None]
  - RASH VESICULAR [None]
